FAERS Safety Report 23981533 (Version 1)
Quarter: 2024Q2

REPORT INFORMATION
  Report Type: Spontaneous
  Country: US (occurrence: None)
  Receive Date: 20240615
  Receipt Date: 20240615
  Transmission Date: 20240716
  Serious: No
  Sender: FDA-Public Use
  Company Number: None

PATIENT
  Age: 61 Year
  Sex: Female
  Weight: 86.4 kg

DRUGS (4)
  1. REPATHA [Suspect]
     Active Substance: EVOLOCUMAB
  2. Chlorthaladone [Concomitant]
  3. VITAMIN D NOS [Concomitant]
     Active Substance: CHOLECALCIFEROL\ERGOCALCIFEROL
  4. VITAMINS [Concomitant]
     Active Substance: VITAMINS

REACTIONS (2)
  - Arthralgia [None]
  - Sleep disorder [None]

NARRATIVE: CASE EVENT DATE: 20240519
